FAERS Safety Report 8042985-0 (Version None)
Quarter: 2012Q1

REPORT INFORMATION
  Report Type: 
  Country: None (occurrence: None)
  Receive Date: 20120112
  Receipt Date: 20120109
  Transmission Date: 20120608
  Serious: Yes (Death)
  Sender: FDA-Public Use
  Company Number: PHEH2012US000848

PATIENT
  Sex: Male

DRUGS (3)
  1. VISTARIL [Concomitant]
  2. SEROQUEL [Concomitant]
  3. TEGRETOL [Suspect]
     Dosage: 200 MG, BID

REACTIONS (1)
  - DEATH [None]
